FAERS Safety Report 6617784-4 (Version None)
Quarter: 2010Q1

REPORT INFORMATION
  Report Type: 
  Country: None (occurrence: None)
  Receive Date: 20100308
  Receipt Date: 20100302
  Transmission Date: 20100710
  Serious: Yes (Life-Threatening, Hospitalization)
  Sender: FDA-Public Use
  Company Number: PHHY2010FI06216

PATIENT
  Sex: Male

DRUGS (5)
  1. ZOMETA [Suspect]
     Indication: METASTASES TO BONE
     Dosage: 3 MG, UNK, FIRST INFUSION
     Route: 042
     Dates: start: 20091221
  2. ZOMETA [Suspect]
     Dosage: 4 MG, UNK, SECOND INFUSION
     Route: 042
     Dates: start: 20100127, end: 20100127
  3. SUTENT [Suspect]
     Indication: RENAL CANCER METASTATIC
     Dosage: 37.5 MG/DAY
     Dates: start: 20091019, end: 20100127
  4. AMLODIPINE [Concomitant]
     Indication: HYPERTENSION
     Dosage: 5 MG/DAY
  5. LISIPRIL COMP [Concomitant]
     Indication: HYPERTENSION

REACTIONS (7)
  - ACTIVITIES OF DAILY LIVING IMPAIRED [None]
  - CARDIOVERSION [None]
  - DYSPNOEA [None]
  - MYOCARDIAL INFARCTION [None]
  - PULSE ABSENT [None]
  - RESUSCITATION [None]
  - VENTRICULAR FIBRILLATION [None]
